FAERS Safety Report 8018407-2 (Version None)
Quarter: 2012Q1

REPORT INFORMATION
  Report Type: 
  Country: None (occurrence: None)
  Receive Date: 20120103
  Receipt Date: 20111226
  Transmission Date: 20120608
  Serious: Yes (Hospitalization)
  Sender: FDA-Public Use
  Company Number: JP-PFIZER INC-2011275194

PATIENT
  Age: 72 Year
  Sex: Female
  Weight: 43.5 kg

DRUGS (15)
  1. DIFLUCAN [Suspect]
     Indication: ANTIFUNGAL TREATMENT
     Dosage: 1 DF, 1X/DAY
     Route: 048
     Dates: start: 20100921, end: 20101018
  2. SEVEN EP [Concomitant]
     Dosage: 1 DF, 3X/DAY
     Route: 048
     Dates: start: 20100921, end: 20101018
  3. VEPESID [Concomitant]
     Indication: B-CELL LYMPHOMA
     Dosage: 66 MG, UNK
     Route: 041
     Dates: start: 20100927, end: 20100930
  4. ONCOVIN [Interacting]
     Indication: DIFFUSE LARGE B-CELL LYMPHOMA
     Dosage: 0.5 MG, UNK
     Route: 041
     Dates: start: 20100927, end: 20100930
  5. LANSOPRAZOLE [Concomitant]
     Dosage: 30 MG, 1X/DAY
     Route: 048
     Dates: start: 20100921, end: 20101018
  6. PREDNISOLONE [Concomitant]
     Indication: DIFFUSE LARGE B-CELL LYMPHOMA
     Dosage: 5 MG, 1X/DAY
     Route: 048
     Dates: start: 20100921, end: 20101018
  7. MUCOSTA [Concomitant]
     Dosage: 100 MG, 3X/DAY
     Route: 048
     Dates: start: 20100921, end: 20101018
  8. FOSAMAX [Concomitant]
     Dosage: 35 MG, WEEKLY
     Route: 048
     Dates: start: 20100921, end: 20101018
  9. CEREKINON [Concomitant]
     Dosage: 100 MG, 3X/DAY
     Route: 048
     Dates: start: 20100921, end: 20101018
  10. SULFAMETHOXAZOLE AND TRIMETHOPRIM [Concomitant]
     Dosage: 1 DF, 1X/DAY
     Route: 048
     Dates: start: 20100921, end: 20101018
  11. DOXORUBICIN HYDROCHLORIDE [Concomitant]
     Indication: LYMPHOMA
     Dosage: 13 MG, UNK
     Route: 041
     Dates: start: 20100927, end: 20100930
  12. CYCLOPHOSPHAMIDE [Concomitant]
     Indication: DIFFUSE LARGE B-CELL LYMPHOMA
     Dosage: 990 MG, UNK
     Route: 041
     Dates: start: 20101001
  13. ALFAROL [Concomitant]
     Dosage: 0.25 UG, 2X/DAY
     Route: 048
     Dates: start: 20100921, end: 20101018
  14. GLAKAY [Concomitant]
     Dosage: 15 MG, 3X/DAY
     Route: 048
     Dates: start: 20100921, end: 20101018
  15. ALDACTONE [Concomitant]
     Dosage: 25 MG, 1X/DAY
     Route: 048
     Dates: start: 20100921, end: 20101018

REACTIONS (2)
  - ILEUS PARALYTIC [None]
  - DRUG INTERACTION [None]
